FAERS Safety Report 6198136-0 (Version None)
Quarter: 2009Q2

REPORT INFORMATION
  Report Type: 
  Country: None (occurrence: None)
  Receive Date: 20090519
  Receipt Date: 20090512
  Transmission Date: 20091009
  Serious: Yes (Death)
  Sender: FDA-Public Use
  Company Number: 2009-196526-NL

PATIENT
  Sex: Female
  Weight: 92.1 kg

DRUGS (3)
  1. IMPLANON [Suspect]
     Dosage: SUBDERMAL
     Route: 059
     Dates: start: 20081229
  2. KEPPRA [Concomitant]
  3. XANAX [Concomitant]

REACTIONS (1)
  - DEATH [None]
